FAERS Safety Report 17718734 (Version 1)
Quarter: 2020Q2

REPORT INFORMATION
  Report Type: Spontaneous
  Country: GB (occurrence: GB)
  Receive Date: 20200428
  Receipt Date: 20200428
  Transmission Date: 20200714
  Serious: Yes (Other)
  Sender: FDA-Public Use
  Company Number: GB-MYLANLABS-2020M1041575

PATIENT
  Age: 21 Year
  Sex: Female
  Weight: 78.46 kg

DRUGS (1)
  1. ISOTRETINOIN. [Suspect]
     Active Substance: ISOTRETINOIN
     Indication: ACNE
     Dosage: 20 MILLIGRAM
     Route: 048
     Dates: start: 20190820

REACTIONS (3)
  - Pain [Unknown]
  - Anal fissure [Not Recovered/Not Resolved]
  - Anal fissure haemorrhage [Unknown]

NARRATIVE: CASE EVENT DATE: 20200101
